FAERS Safety Report 17903158 (Version 3)
Quarter: 2020Q4

REPORT INFORMATION
  Report Type: Spontaneous
  Country: US (occurrence: US)
  Receive Date: 20200617
  Receipt Date: 20201009
  Transmission Date: 20210113
  Serious: No
  Sender: FDA-Public Use
  Company Number: US-BIOGEN-2020BI00887386

PATIENT
  Age: 64 Year
  Sex: Female

DRUGS (1)
  1. TECFIDERA [Suspect]
     Active Substance: DIMETHYL FUMARATE
     Indication: MULTIPLE SCLEROSIS
     Route: 065
     Dates: start: 20180515, end: 20201006

REACTIONS (10)
  - Malaise [Unknown]
  - Vertigo [Not Recovered/Not Resolved]
  - Memory impairment [Not Recovered/Not Resolved]
  - Neck injury [Unknown]
  - Fall [Recovered/Resolved]
  - Head injury [Unknown]
  - Multiple injuries [Unknown]
  - Rib fracture [Unknown]
  - Flushing [Unknown]
  - Amnesia [Unknown]

NARRATIVE: CASE EVENT DATE: 20200615
